FAERS Safety Report 17975331 (Version 2)
Quarter: 2020Q3

REPORT INFORMATION
  Report Type: Spontaneous
  Country: ET (occurrence: ET)
  Receive Date: 20200702
  Receipt Date: 20200819
  Transmission Date: 20201103
  Serious: Yes (Hospitalization)
  Sender: FDA-Public Use
  Company Number: ET-NOVOPROD-736712

PATIENT
  Age: 11 Year
  Sex: Female
  Weight: 64 kg

DRUGS (4)
  1. ISOPHANE INSULIN [Suspect]
     Active Substance: INSULIN NOS
     Indication: TYPE 1 DIABETES MELLITUS
     Dosage: 38 IU, QD (24IU IN THE MORNING AND 14 IU IN THE EVENING)
     Route: 058
  2. ACTRAPID [Suspect]
     Active Substance: INSULIN HUMAN
     Indication: TYPE 1 DIABETES MELLITUS
     Dosage: 6 IU, BID (MORNING, EVENING)
     Route: 058
  3. ISOPHANE INSULIN [Suspect]
     Active Substance: INSULIN NOS
     Dosage: 2 VIALS OF 10ML
     Route: 058
  4. ACTRAPID [Suspect]
     Active Substance: INSULIN HUMAN
     Dosage: ??? ? VIALS OF 10ML
     Route: 058

REACTIONS (3)
  - Neuroglycopenia [Recovered/Resolved]
  - Hypoglycaemia [Recovered/Resolved]
  - Suicide attempt [Recovered/Resolved]

NARRATIVE: CASE EVENT DATE: 20200617
